FAERS Safety Report 11646782 (Version 2)
Quarter: 2015Q4

REPORT INFORMATION
  Report Type: Spontaneous
  Country: US (occurrence: US)
  Receive Date: 20151020
  Receipt Date: 20151202
  Transmission Date: 20160304
  Serious: Yes (Hospitalization)
  Sender: FDA-Public Use
  Company Number: US-ROCHE-1621518

PATIENT
  Sex: Female
  Weight: 63.56 kg

DRUGS (2)
  1. ESBRIET [Suspect]
     Active Substance: PIRFENIDONE
     Dosage: ONE CAPSULE THRICE A DAY
     Route: 048
     Dates: start: 20150624
  2. ESBRIET [Suspect]
     Active Substance: PIRFENIDONE
     Indication: IDIOPATHIC PULMONARY FIBROSIS
     Dosage: 3 CAPSULES ORAL THRICE IN ONE DAY
     Route: 048

REACTIONS (2)
  - Lung disorder [Unknown]
  - Fatigue [Unknown]
